FAERS Safety Report 18438677 (Version 1)
Quarter: 2020Q4

REPORT INFORMATION
  Report Type: Spontaneous
  Country: IN (occurrence: IN)
  Receive Date: 20201029
  Receipt Date: 20201029
  Transmission Date: 20210114
  Serious: Yes (Hospitalization)
  Sender: FDA-Public Use
  Company Number: IN-LUPIN PHARMACEUTICALS INC.-2020-07853

PATIENT
  Age: 2 Year
  Sex: Male

DRUGS (8)
  1. PREDNISOLONE. [Concomitant]
     Active Substance: PREDNISOLONE
     Indication: BONE TUBERCULOSIS
     Dosage: ON TAPERING DOSE
     Route: 065
  2. RIFAMPIN. [Suspect]
     Active Substance: RIFAMPIN
     Indication: BONE TUBERCULOSIS
     Dosage: 30 MILLIGRAM/KILOGRAM, INTENSIVE PHASE FOR 2 MONTHS
     Route: 065
  3. RIFAMPIN. [Suspect]
     Active Substance: RIFAMPIN
     Dosage: 15 MILLIGRAM/KILOGRAM, CONTINUATION PHASE
     Route: 065
  4. PYRAZINAMIDE. [Concomitant]
     Active Substance: PYRAZINAMIDE
     Indication: BONE TUBERCULOSIS
     Dosage: 35 MILLIGRAM/KILOGRAM, INTENSIVE PHASE FOR 2 MONTHS
     Route: 065
  5. ISONIAZID. [Suspect]
     Active Substance: ISONIAZID
     Indication: BONE TUBERCULOSIS
     Dosage: INTENSIVE PHASE FOR 2 MONTHS THEN CONTINUATION PHASE
     Route: 065
  6. ETHAMBUTOL [Concomitant]
     Active Substance: ETHAMBUTOL HYDROCHLORIDE
     Indication: BONE TUBERCULOSIS
     Dosage: 20 MILLIGRAM/KILOGRAM, INTENSIVE PHASE FOR 2 MONTHS
     Route: 065
  7. ETHAMBUTOL [Concomitant]
     Active Substance: ETHAMBUTOL HYDROCHLORIDE
     Dosage: 15 MILLIGRAM/KILOGRAM
     Route: 065
  8. PYRAZINAMIDE. [Concomitant]
     Active Substance: PYRAZINAMIDE
     Dosage: 25 MILLIGRAM/KILOGRAM
     Route: 065

REACTIONS (1)
  - Drug resistance [Unknown]
